FAERS Safety Report 5067594-7 (Version None)
Quarter: 2006Q3

REPORT INFORMATION
  Report Type: 
  Country: None (occurrence: None)
  Receive Date: 20060731
  Receipt Date: 20060511
  Transmission Date: 20061208
  Serious: Yes (Life-Threatening, Hospitalization, Disabling, Other)
  Sender: FDA-Public Use
  Company Number: WAES 0603USA04500

PATIENT
  Age: 66 Year
  Sex: Male
  Weight: 83.4619 kg

DRUGS (7)
  1. VYTORIN [Suspect]
     Indication: HYPERLIPIDAEMIA
     Dosage: 10-40 MG DAILY PO
     Route: 048
     Dates: start: 20060311, end: 20060320
  2. VYTORIN [Suspect]
     Indication: HYPERLIPIDAEMIA
     Dosage: 10-40 MG DAILY PO
     Route: 048
     Dates: start: 20060321, end: 20060321
  3. NIASPAN [Suspect]
     Indication: BLOOD CHOLESTEROL INCREASED
     Dosage: 500 MG BID PO
     Route: 048
     Dates: start: 20041101, end: 20060321
  4. ACCUPRIL [Concomitant]
  5. ADALAT [Concomitant]
  6. TOPROL-XL [Concomitant]
  7. ASPIRIN [Concomitant]

REACTIONS (4)
  - RENAL FAILURE [None]
  - RHABDOMYOLYSIS [None]
  - URINARY TRACT INFECTION [None]
  - WRONG TECHNIQUE IN DRUG USAGE PROCESS [None]
